FAERS Safety Report 4532360-5 (Version None)
Quarter: 2004Q4

REPORT INFORMATION
  Report Type: 
  Country: None (occurrence: None)
  Receive Date: 20041220
  Receipt Date: 20041214
  Transmission Date: 20050328
  Serious: Yes (Hospitalization)
  Sender: FDA-Public Use
  Company Number: SE-MERCK-0412SWE00025

PATIENT
  Age: 79 Year
  Sex: Female

DRUGS (4)
  1. VIOXX [Suspect]
     Indication: LOCALISED OSTEOARTHRITIS
     Route: 048
     Dates: start: 19990101, end: 20011212
  2. METOPROLOL TARTRATE [Concomitant]
     Route: 065
  3. LEVOTHYROXINE SODIUM [Concomitant]
     Route: 065
  4. SIMVASTATIN [Concomitant]
     Route: 048

REACTIONS (3)
  - FLUID RETENTION [None]
  - LUNG DISORDER [None]
  - MYOCARDIAL INFARCTION [None]
